FAERS Safety Report 21546374 (Version 1)
Quarter: 2022Q4

REPORT INFORMATION
  Report Type: Spontaneous
  Country: CA (occurrence: CA)
  Receive Date: 20221103
  Receipt Date: 20221103
  Transmission Date: 20230113
  Serious: Yes (Other)
  Sender: FDA-Public Use
  Company Number: CA-PFIZER INC-202201261724

PATIENT
  Age: 35 Year
  Sex: Male

DRUGS (1)
  1. ABRILADA [Suspect]
     Active Substance: ADALIMUMAB-AFZB
     Indication: Colitis ulcerative
     Dosage: 40 MG, INDUCTION 160MG WEEK 0, 80MG WEEK 2 THEN 40MG EVERY 2 WEEKS STARTING WEEK 4
     Route: 058
     Dates: start: 20221007, end: 20221021

REACTIONS (1)
  - Umbilical hernia [Unknown]
